FAERS Safety Report 5052418-4 (Version None)
Quarter: 2006Q3

REPORT INFORMATION
  Report Type: 
  Country: None (occurrence: None)
  Receive Date: 20060714
  Receipt Date: 20060714
  Transmission Date: 20061208
  Serious: Yes (Disabling, Other)
  Sender: FDA-Public Use
  Company Number: None

PATIENT
  Age: 50 Year
  Sex: Male

DRUGS (2)
  1. LEMON LIME PHOSPHOSODA [Suspect]
     Indication: COLOSTOMY CLOSURE
     Dosage: 45ML BID PO
     Route: 048
     Dates: start: 20040613
  2. LEMON LIME PHOSPHOSODA [Suspect]
     Indication: COLOSTOMY CLOSURE
     Dosage: 45ML BID PO
     Route: 048
     Dates: start: 20040620

REACTIONS (1)
  - RENAL FAILURE [None]
